FAERS Safety Report 24434385 (Version 4)
Quarter: 2024Q4

REPORT INFORMATION
  Report Type: Spontaneous
  Country: US (occurrence: US)
  Receive Date: 20241014
  Receipt Date: 20241030
  Transmission Date: 20250115
  Serious: No
  Sender: PFIZER
  Company Number: US-PFIZER INC-202400274594

PATIENT
  Age: 65 Year
  Sex: Female
  Weight: 54.43 kg

DRUGS (4)
  1. IBRANCE [Suspect]
     Active Substance: PALBOCICLIB
     Indication: Neoplasm malignant
     Dosage: 125 MG, CYCLIC (125 MG TABLETS, DAILY, 21 DAYS ON, 7 DAYS OFF)
     Route: 048
     Dates: start: 20241011
  2. RAMIPRIL [Concomitant]
     Active Substance: RAMIPRIL
     Indication: Hypertension
     Dosage: 5 MG, 1X/DAY (5MG CAPSULE ONCE A DAY BY MOUTH)
     Route: 048
  3. TIMOLOL MALEATE [Concomitant]
     Active Substance: TIMOLOL MALEATE
     Indication: Glaucoma
     Dosage: UNK, 1X/DAY (0.5% EYE DROP IN EACH EYE ONCE A DAY)
     Route: 047
  4. LATANOPROST [Concomitant]
     Active Substance: LATANOPROST
     Indication: Glaucoma
     Dosage: 1 DROP, 1X/DAY (0.005% EYE DROPS ONE DROP EACH DAY IN EACH EYE)
     Route: 047

REACTIONS (4)
  - Cardiac disorder [Unknown]
  - Brain fog [Not Recovered/Not Resolved]
  - Condition aggravated [Unknown]
  - Memory impairment [Unknown]
